FAERS Safety Report 10267042 (Version 1)
Quarter: 2014Q2

REPORT INFORMATION
  Report Type: Spontaneous
  Country: US (occurrence: US)
  Receive Date: 20140630
  Receipt Date: 20140630
  Transmission Date: 20141212
  Serious: Yes (Other)
  Sender: FDA-Public Use
  Company Number: US-ABBVIE-14P-163-1251707-00

PATIENT
  Age: 70 Year
  Sex: Male
  Weight: 113.5 kg

DRUGS (10)
  1. LUPRON DEPOT [Suspect]
     Indication: PROSTATE CANCER
     Route: 058
     Dates: start: 201311
  2. LISINOPRIL [Concomitant]
     Indication: HYPERTENSION
  3. PANTOPRAZOLE [Concomitant]
     Indication: GASTROOESOPHAGEAL REFLUX DISEASE
  4. BROMPHENIRAMINE [Concomitant]
     Indication: SINUS DISORDER
  5. SERTRALINE [Concomitant]
     Indication: DEPRESSION
  6. ALPRAZOLAM [Concomitant]
     Indication: ANXIETY
  7. ATORVASTATIN [Concomitant]
     Indication: BLOOD CHOLESTEROL INCREASED
  8. HYDROCODONE [Concomitant]
     Indication: BACK PAIN
  9. FUROSEMIDE [Concomitant]
     Indication: FLUID RETENTION
  10. TAMSULOSIN [Concomitant]
     Indication: PROSTATE CANCER

REACTIONS (8)
  - Pruritus [Not Recovered/Not Resolved]
  - Rash [Not Recovered/Not Resolved]
  - Erythema [Not Recovered/Not Resolved]
  - Hot flush [Recovering/Resolving]
  - Paraesthesia [Recovered/Resolved]
  - Dizziness [Recovered/Resolved]
  - Headache [Recovered/Resolved]
  - Dry skin [Not Recovered/Not Resolved]
